FAERS Safety Report 14089147 (Version 2)
Quarter: 2021Q3

REPORT INFORMATION
  Report Type: Spontaneous
  Country: AU (occurrence: AU)
  Receive Date: 20171013
  Receipt Date: 20210820
  Transmission Date: 20211014
  Serious: Yes (Hospitalization)
  Sender: FDA-Public Use
  Company Number: AU-PFIZER INC-2017353627

PATIENT
  Age: 80 Year
  Sex: Female

DRUGS (4)
  1. MINIPRESS [Suspect]
     Active Substance: PRAZOSIN HYDROCHLORIDE
     Indication: HYPERTENSION
     Dosage: 2 MG, ONCE A DAY
     Dates: start: 20170412
  2. CRESTOR [Concomitant]
     Active Substance: ROSUVASTATIN CALCIUM
  3. ASPIRIN /00002701/ [Concomitant]
     Active Substance: ASPIRIN
  4. MINIPRESS [Suspect]
     Active Substance: PRAZOSIN HYDROCHLORIDE
     Dosage: 5 MG, THREE TIMES A DAY
     Dates: start: 201612, end: 20170727

REACTIONS (5)
  - Malaise [Unknown]
  - Blood pressure inadequately controlled [Recovering/Resolving]
  - Blood glucose increased [Unknown]
  - Palpitations [Recovered/Resolved]
  - Renal cyst [Recovering/Resolving]

NARRATIVE: CASE EVENT DATE: 2017
